FAERS Safety Report 7681502-1 (Version None)
Quarter: 2011Q3

REPORT INFORMATION
  Report Type: 
  Country: None (occurrence: None)
  Receive Date: 20110812
  Receipt Date: 20110803
  Transmission Date: 20111222
  Serious: Yes (Other)
  Sender: FDA-Public Use
  Company Number: PHHY2011DE70218

PATIENT
  Sex: Male

DRUGS (13)
  1. EXELON [Suspect]
     Dosage: 4.6 MG/ 24 H, UNK
     Route: 062
  2. BISOPROLOL FUMARATE [Concomitant]
     Dosage: 5 MG, UNK
  3. TAMSULOSIN HCL [Concomitant]
     Dosage: 0.4 MG, UNK
  4. PENTAERYTHRITOL TETRANITRATE [Concomitant]
     Dosage: 50 MG, BID
  5. LORAZEPAM [Concomitant]
     Dosage: 1 MG, UNK
  6. ASPIRIN [Concomitant]
     Dosage: 100
  7. ULCOGANT                                /GFR/ [Concomitant]
     Dosage: UNK UKN, UNK
  8. SEROQUEL [Concomitant]
     Dosage: 50 MG, UNK
  9. STALEVO 100 [Concomitant]
     Dosage: 150/ 37.5/ 200
  10. ENOXAPARIN SODIUM [Concomitant]
     Dosage: 0.2
  11. SPIRONOLACTONE [Concomitant]
     Dosage: 25 MG, UNK
  12. RAMIPRIL [Concomitant]
     Dosage: 2.5 MG, UNK
  13. TORSEMIDE [Concomitant]
     Dosage: 5 MG, UNK

REACTIONS (4)
  - CARDIOVASCULAR INSUFFICIENCY [None]
  - UNRESPONSIVE TO STIMULI [None]
  - RESPIRATORY DEPRESSION [None]
  - MIOSIS [None]
